FAERS Safety Report 17555037 (Version 1)
Quarter: 2020Q1

REPORT INFORMATION
  Report Type: Spontaneous
  Country: US (occurrence: US)
  Receive Date: 20200310
  Receipt Date: 20200310
  Transmission Date: 20200409
  Serious: No
  Sender: FDA-Public Use
  Company Number: None

PATIENT

DRUGS (2)
  1. TARINA FE 1/20 EQ [Suspect]
     Active Substance: ETHINYL ESTRADIOL\NORETHINDRONE ACETATE
     Dosage: ?          OTHER STRENGTH:1MG/20MCG/75MG;?
     Route: 048
  2. CYRED EQ [Suspect]
     Active Substance: DESOGESTREL\ETHINYL ESTRADIOL
     Dosage: ?          OTHER STRENGTH:0.15MG/0.03MG;?
     Route: 048

REACTIONS (1)
  - Product packaging confusion [None]
